FAERS Safety Report 6022167-4 (Version None)
Quarter: 2008Q4

REPORT INFORMATION
  Report Type: 
  Country: None (occurrence: None)
  Receive Date: 20081229
  Receipt Date: 20081222
  Transmission Date: 20090506
  Serious: Yes (Hospitalization)
  Sender: FDA-Public Use
  Company Number: US-B.I. PHARMACEUTICALS,INC./RIDGEFIELD-2008-BP-14277BP

PATIENT
  Age: 36 Year
  Sex: Female

DRUGS (3)
  1. MIRAPEX [Suspect]
     Indication: FIBROMYALGIA
     Dosage: 3MG
     Route: 048
     Dates: start: 20060101, end: 20080930
  2. PLAQUENIL [Concomitant]
     Indication: SYSTEMIC LUPUS ERYTHEMATOSUS
  3. ADVAIR DISKUS 250/50 [Concomitant]
     Indication: ASTHMA

REACTIONS (11)
  - COMPULSIVE SHOPPING [None]
  - CONFUSIONAL STATE [None]
  - CONVULSION [None]
  - DENTAL CARIES [None]
  - DEPRESSION [None]
  - FATIGUE [None]
  - INFECTION [None]
  - OBSESSIVE-COMPULSIVE DISORDER [None]
  - PERSONALITY CHANGE [None]
  - SUICIDAL IDEATION [None]
  - WEIGHT DECREASED [None]
